FAERS Safety Report 4551217-7 (Version None)
Quarter: 2005Q1

REPORT INFORMATION
  Report Type: 
  Country: None (occurrence: None)
  Receive Date: 20050106
  Receipt Date: 20041223
  Transmission Date: 20050727
  Serious: Yes (Life-Threatening)
  Sender: FDA-Public Use
  Company Number: 2004EU002256

PATIENT
  Age: 66 Year
  Sex: Female

DRUGS (3)
  1. PROGRAF [Suspect]
     Dosage: 6.00 MG, UNKNOWN/D, ORAL
     Route: 048
     Dates: start: 20040201
  2. SUMIAL (PROPRANOLOL HYDROCHLORIDE) [Concomitant]
  3. OMEPRAZOLE [Concomitant]

REACTIONS (1)
  - AGRANULOCYTOSIS [None]
